FAERS Safety Report 5830734-3 (Version None)
Quarter: 2008Q3

REPORT INFORMATION
  Report Type: 
  Country: None (occurrence: None)
  Receive Date: 20080801
  Receipt Date: 20071031
  Transmission Date: 20090109
  Serious: No
  Sender: FDA-Public Use
  Company Number: US-BRISTOL-MYERS SQUIBB COMPANY-13965132

PATIENT
  Age: 65 Year
  Sex: Male
  Weight: 91 kg

DRUGS (12)
  1. WARFARIN SODIUM [Suspect]
     Indication: DEEP VEIN THROMBOSIS
     Dosage: 5MG/DAY MAR-2006 TO 19-JUN-2007;39MG/WK 20-JUN-2007 TO 26-JUL-2007;
     Route: 048
     Dates: start: 20070727
  2. METOPROLOL [Concomitant]
  3. ISOSORBIDE DINITRATE [Concomitant]
  4. TOPAMAX [Concomitant]
  5. EFFEXOR [Concomitant]
  6. CLONAZEPAM [Concomitant]
  7. SINGULAIR [Concomitant]
  8. PEPCID [Concomitant]
  9. DOXAZOSIN MESYLATE [Concomitant]
  10. ACTOS [Concomitant]
  11. RISPERDAL [Concomitant]
  12. MULTI-VITAMINS [Concomitant]

REACTIONS (1)
  - INTERNATIONAL NORMALISED RATIO DECREASED [None]
